FAERS Safety Report 24785284 (Version 1)
Quarter: 2024Q4

REPORT INFORMATION
  Report Type: Spontaneous
  Country: GB (occurrence: GB)
  Receive Date: 20241228
  Receipt Date: 20241228
  Transmission Date: 20250115
  Serious: Yes (Life-Threatening, Other)
  Sender: ACCORD
  Company Number: None

PATIENT
  Age: 19 Year
  Sex: Female

DRUGS (3)
  1. SERTRALINE [Suspect]
     Active Substance: SERTRALINE HYDROCHLORIDE
     Indication: Product used for unknown indication
     Dates: start: 20241205, end: 20241210
  2. FOLIC ACID [Concomitant]
     Active Substance: FOLIC ACID
     Dates: start: 20241211
  3. SERTRALINE [Suspect]
     Active Substance: SERTRALINE HYDROCHLORIDE
     Indication: Product used for unknown indication
     Dates: start: 20241129, end: 20241205

REACTIONS (4)
  - Abnormal behaviour [Recovered/Resolved with Sequelae]
  - Self-destructive behaviour [Recovered/Resolved with Sequelae]
  - Amnesia [Recovered/Resolved]
  - Nightmare [Not Recovered/Not Resolved]

NARRATIVE: CASE EVENT DATE: 20241130
